FAERS Safety Report 15918363 (Version 1)
Quarter: 2019Q1

REPORT INFORMATION
  Report Type: Spontaneous
  Country: GB (occurrence: GB)
  Receive Date: 20190205
  Receipt Date: 20190205
  Transmission Date: 20190417
  Serious: Yes (Death)
  Sender: FDA-Public Use
  Company Number: GB-009507513-1902GBR000302

PATIENT
  Age: 47 Year
  Sex: Male

DRUGS (8)
  1. ASPIRIN. [Concomitant]
     Active Substance: ASPIRIN
  2. RANITIDINE. [Concomitant]
     Active Substance: RANITIDINE
  3. CASPOFUNGIN ACETATE. [Suspect]
     Active Substance: CASPOFUNGIN ACETATE
     Dosage: 70MG STAT THEN 50MG ONCE DAILY
     Route: 042
     Dates: start: 20190106, end: 20190108
  4. ENOXAPARIN SODIUM. [Concomitant]
     Active Substance: ENOXAPARIN SODIUM
  5. MEROPENEM. [Concomitant]
     Active Substance: MEROPENEM
  6. ATORVASTATIN [Concomitant]
     Active Substance: ATORVASTATIN
  7. TICAGRELOR. [Concomitant]
     Active Substance: TICAGRELOR
  8. LACTULOSE. [Concomitant]
     Active Substance: LACTULOSE

REACTIONS (2)
  - Hypercalcaemia [Fatal]
  - Liver function test increased [Not Recovered/Not Resolved]
